FAERS Safety Report 6198138-4 (Version None)
Quarter: 2009Q2

REPORT INFORMATION
  Report Type: 
  Country: None (occurrence: None)
  Receive Date: 20090515
  Receipt Date: 20081016
  Transmission Date: 20091009
  Serious: Yes (Other)
  Sender: FDA-Public Use
  Company Number: 53491

PATIENT
  Age: 37 Year
  Sex: Male
  Weight: 85 kg

DRUGS (4)
  1. AMIKACIN SULFATE [Suspect]
     Indication: PNEUMONIA
     Dosage: 600MG IV Q 8 HOURS
     Route: 042
     Dates: start: 20081001
  2. CEFEPIME [Concomitant]
  3. AZTREONAM [Concomitant]
  4. CEFTAZIDIME [Concomitant]

REACTIONS (1)
  - DRUG INEFFECTIVE [None]
